FAERS Safety Report 9614272 (Version 2)
Quarter: 2013Q4

REPORT INFORMATION
  Report Type: Spontaneous
  Country: DE (occurrence: DE)
  Receive Date: 20131011
  Receipt Date: 20131017
  Transmission Date: 20140711
  Serious: Yes (Hospitalization)
  Sender: FDA-Public Use
  Company Number: DE-AMGEN-DEUSP2013070482

PATIENT
  Age: 40 Year
  Sex: Female
  Weight: 75 kg

DRUGS (4)
  1. NEULASTA [Suspect]
     Indication: PROPHYLAXIS
     Dosage: 6 MG, 1 X
     Route: 058
     Dates: start: 20130919, end: 20130919
  2. EPIRUBICIN [Suspect]
     Indication: BREAST CANCER
     Dosage: 164 MG, Q2WK
     Route: 042
     Dates: start: 20130715
  3. CYCLOPHOSPHAMIDE [Suspect]
     Indication: BREAST CANCER
     Dosage: 1092 MG, Q2WK
     Route: 042
     Dates: start: 20130715
  4. DOCETAXEL [Suspect]
     Indication: BREAST CANCER
     Dosage: 134 MG, Q2WK
     Route: 042
     Dates: start: 20130918

REACTIONS (1)
  - Chills [Recovered/Resolved]
